FAERS Safety Report 20101249 (Version 3)
Quarter: 2022Q1

REPORT INFORMATION
  Report Type: Report from Study
  Country: CO (occurrence: CO)
  Receive Date: 20211123
  Receipt Date: 20220114
  Transmission Date: 20220423
  Serious: Yes (Death, Life-Threatening, Hospitalization)
  Sender: FDA-Public Use
  Company Number: CO-NOVARTISPH-NVSC2021CO146079

PATIENT
  Sex: Male

DRUGS (1)
  1. VOTRIENT [Suspect]
     Active Substance: PAZOPANIB HYDROCHLORIDE
     Indication: Metastatic renal cell carcinoma
     Dosage: UNK
     Route: 048

REACTIONS (14)
  - Death [Fatal]
  - Breast cancer [Unknown]
  - Asphyxia [Not Recovered/Not Resolved]
  - Choking [Unknown]
  - Pulmonary oedema [Unknown]
  - Malaise [Unknown]
  - Recurrent cancer [Recovering/Resolving]
  - Metastases to lung [Unknown]
  - Cough [Not Recovered/Not Resolved]
  - Dyspnoea [Unknown]
  - Drug ineffective [Unknown]
  - Pyrexia [Unknown]
  - Fear [Unknown]
  - Chills [Unknown]
